FAERS Safety Report 22701725 (Version 2)
Quarter: 2023Q4

REPORT INFORMATION
  Report Type: Spontaneous
  Country: FR (occurrence: FR)
  Receive Date: 20230713
  Receipt Date: 20231109
  Transmission Date: 20240110
  Serious: Yes (Hospitalization, Other)
  Sender: FDA-Public Use
  Company Number: None

PATIENT
  Age: 71 Year
  Sex: Male
  Weight: 78 kg

DRUGS (6)
  1. MIANSERIN [Suspect]
     Active Substance: MIANSERIN
     Indication: Product used for unknown indication
     Dosage: 2 DOSAGE FORM, UNKNOWN DOSE 1 FP
     Route: 048
     Dates: start: 20230411, end: 20230411
  2. ACETAMINOPHEN [Suspect]
     Active Substance: ACETAMINOPHEN
     Indication: Product used for unknown indication
     Dosage: 3 TABS, 1 FP
     Route: 048
     Dates: start: 20230411, end: 20230411
  3. FOLIC ACID [Suspect]
     Active Substance: FOLIC ACID
     Indication: Product used for unknown indication
     Dosage: 75 MILLIGRAM, (TOTAL OF 75MG) 1 FP
     Route: 048
     Dates: start: 20230411, end: 20230411
  4. TRAMADOL HYDROCHLORIDE [Suspect]
     Active Substance: TRAMADOL HYDROCHLORIDE
     Indication: Product used for unknown indication
     Dosage: 4 DOSAGE FORM, UNKNOWN DOSE, 1FP
     Route: 048
     Dates: start: 20230411, end: 20230411
  5. DIAZEPAM [Suspect]
     Active Substance: DIAZEPAM
     Indication: Product used for unknown indication
     Dosage: 60 MILLIGRAM, TOTAL, 1FP
     Route: 048
     Dates: start: 20230411, end: 20230411
  6. COLCHICINE [Suspect]
     Active Substance: COLCHICINE
     Indication: Product used for unknown indication
     Dosage: 10 DOSAGE FORM, 1 FP
     Route: 048
     Dates: start: 20230411, end: 20230411

REACTIONS (5)
  - Hepatocellular injury [Recovered/Resolved]
  - Psychomotor skills impaired [Recovered/Resolved]
  - Neutropenia [Recovering/Resolving]
  - Poisoning deliberate [Unknown]
  - Hypotension [Recovered/Resolved]

NARRATIVE: CASE EVENT DATE: 20230411
